FAERS Safety Report 10751435 (Version 1)
Quarter: 2015Q1

REPORT INFORMATION
  Report Type: Spontaneous
  Country: RU (occurrence: RU)
  Receive Date: 20150130
  Receipt Date: 20150130
  Transmission Date: 20150721
  Serious: Yes (Other)
  Sender: FDA-Public Use
  Company Number: RU-BIOMARINAP-RU-2015-105367

PATIENT
  Age: 25 Month
  Sex: Male
  Weight: 11 kg

DRUGS (1)
  1. ALDURAZYME [Suspect]
     Active Substance: LARONIDASE
     Indication: MUCOPOLYSACCHARIDOSIS I
     Dosage: UNK
     Route: 042

REACTIONS (3)
  - Body temperature increased [Unknown]
  - Pneumonia [Recovered/Resolved]
  - Ketonuria [Unknown]

NARRATIVE: CASE EVENT DATE: 20141229
